FAERS Safety Report 22009262 (Version 1)
Quarter: 2023Q1

REPORT INFORMATION
  Report Type: Spontaneous
  Country: IT (occurrence: IT)
  Receive Date: 20230220
  Receipt Date: 20230220
  Transmission Date: 20230418
  Serious: Yes (Hospitalization)
  Sender: FDA-Public Use
  Company Number: IT-MACLEODS PHARMACEUTICALS US LTD-MAC2023039817

PATIENT

DRUGS (7)
  1. RIVASTIGMINE [Suspect]
     Active Substance: RIVASTIGMINE
     Indication: Central nervous system vasculitis
     Dosage: 9.5 MILLIGRAM (PATCH)
     Route: 062
  2. RIVASTIGMINE [Suspect]
     Active Substance: RIVASTIGMINE
     Indication: Cognitive disorder
     Dosage: 4.6 MILLIGRAM, QD
     Route: 062
  3. RIVASTIGMINE [Suspect]
     Active Substance: RIVASTIGMINE
     Dosage: 9.5 MILLIGRAM, QD (AFTER 7 DAYS, THE PRE-HOSPITAL DOSAGE)
     Route: 062
  4. ESCITALOPRAM [Concomitant]
     Active Substance: ESCITALOPRAM OXALATE
     Indication: Central nervous system vasculitis
     Dosage: 10 MILLIGRAM
     Route: 065
  5. ESCITALOPRAM [Concomitant]
     Active Substance: ESCITALOPRAM OXALATE
     Indication: Cognitive disorder
  6. AMLODIPINE [Concomitant]
     Active Substance: AMLODIPINE BESYLATE
     Indication: Hypertension
     Dosage: UNK
     Route: 065
  7. OLMESARTAN MEDOXOMIL [Concomitant]
     Active Substance: OLMESARTAN MEDOXOMIL
     Indication: Hypertension
     Dosage: UNK
     Route: 065

REACTIONS (6)
  - Acute kidney injury [Unknown]
  - Leukocytosis [Unknown]
  - Hypokalaemia [Unknown]
  - Electrolyte imbalance [Unknown]
  - Blood cholinesterase decreased [Unknown]
  - Diarrhoea [Recovered/Resolved]
